FAERS Safety Report 9520547 (Version 4)
Quarter: 2013Q4

REPORT INFORMATION
  Report Type: Report from Study
  Country: IL (occurrence: IL)
  Receive Date: 20130913
  Receipt Date: 20131209
  Transmission Date: 20140711
  Serious: Yes (Hospitalization)
  Sender: FDA-Public Use
  Company Number: IL-BIOGENIDEC-2013BI083492

PATIENT
  Age: 53 Year
  Sex: Female
  Weight: 55 kg

DRUGS (4)
  1. BG00012 [Suspect]
     Indication: MULTIPLE SCLEROSIS
     Route: 048
     Dates: start: 20101121, end: 20130910
  2. BG00012 [Suspect]
     Indication: MULTIPLE SCLEROSIS
     Dates: start: 20130924
  3. ZOLMITRIPTAN [Concomitant]
     Indication: MIGRAINE
     Route: 048
     Dates: start: 1998
  4. CILAZAPRIL [Concomitant]
     Indication: HYPERTENSION
     Route: 048
     Dates: start: 2008

REACTIONS (1)
  - Herpes simplex [Recovered/Resolved]
